FAERS Safety Report 12323462 (Version 3)
Quarter: 2016Q2

REPORT INFORMATION
  Report Type: Spontaneous
  Country: US (occurrence: US)
  Receive Date: 20160502
  Receipt Date: 20160520
  Transmission Date: 20160815
  Serious: Yes (Other)
  Sender: FDA-Public Use
  Company Number: US-PFIZER INC-2016237347

PATIENT
  Age: 60 Year
  Sex: Female
  Weight: 64 kg

DRUGS (1)
  1. IBRANCE [Suspect]
     Active Substance: PALBOCICLIB
     Indication: BREAST CANCER FEMALE
     Dosage: 125 MG, CYCLIC (1 CAP D1-D21 Q28 D)/D1-D21Q 28 D
     Route: 048
     Dates: start: 20160415, end: 20160503

REACTIONS (7)
  - Nausea [Unknown]
  - Activities of daily living impaired [Unknown]
  - Pain [Unknown]
  - Hypotension [Unknown]
  - Asthenia [Unknown]
  - Vomiting [Unknown]
  - Urinary tract infection [Recovered/Resolved]
